FAERS Safety Report 6782501-4 (Version None)
Quarter: 2010Q2

REPORT INFORMATION
  Report Type: 
  Country: None (occurrence: None)
  Receive Date: 20100616
  Receipt Date: 20100609
  Transmission Date: 20101027
  Serious: Yes (Other)
  Sender: FDA-Public Use
  Company Number: TPA2010A03551

PATIENT
  Age: 77 Year
  Sex: Female
  Weight: 56.6996 kg

DRUGS (5)
  1. PREVACID [Suspect]
     Indication: GASTROOESOPHAGEAL REFLUX DISEASE
     Dosage: 30MG, 2 IN 1D, PER ORAL
     Route: 048
  2. FORTEO [Concomitant]
  3. CHOLESTEROL PILL (CHOLESTEROL) [Concomitant]
  4. LASIX [Concomitant]
  5. COUMADIN [Concomitant]

REACTIONS (4)
  - ARTHRALGIA [None]
  - BALANCE DISORDER [None]
  - HIP ARTHROPLASTY [None]
  - JOINT SWELLING [None]
